FAERS Safety Report 13541325 (Version 1)
Quarter: 2017Q2

REPORT INFORMATION
  Report Type: Report from Study
  Country: VN (occurrence: VN)
  Receive Date: 20170512
  Receipt Date: 20170512
  Transmission Date: 20170830
  Serious: Yes (Death)
  Sender: FDA-Public Use
  Company Number: VN-ASTELLAS-2017US018597

PATIENT
  Sex: Male

DRUGS (1)
  1. ERLOTINIB [Suspect]
     Active Substance: ERLOTINIB
     Indication: LUNG NEOPLASM MALIGNANT
     Dosage: 150 MG, ONCE DAILY (1 AND 1/2 OF TABLET 100MG)
     Route: 048

REACTIONS (2)
  - Death [Fatal]
  - Off label use [Unknown]
